FAERS Safety Report 20172651 (Version 1)
Quarter: 2021Q4

REPORT INFORMATION
  Report Type: Spontaneous
  Country: FR (occurrence: FR)
  Receive Date: 20211211
  Receipt Date: 20211211
  Transmission Date: 20220303
  Serious: Yes (Other)
  Sender: FDA-Public Use
  Company Number: None

PATIENT
  Age: 92 Year
  Sex: Female
  Weight: 60 kg

DRUGS (5)
  1. OLANZAPINE [Suspect]
     Active Substance: OLANZAPINE
     Indication: Agitation
     Route: 065
     Dates: start: 20210527, end: 20210529
  2. .ALPHA.-TOCOPHEROL ACETATE, D- [Concomitant]
     Active Substance: .ALPHA.-TOCOPHEROL ACETATE, D-
     Indication: Product used for unknown indication
     Dosage: 500 MG
  3. LORAZEPAM [Concomitant]
     Active Substance: LORAZEPAM
     Indication: Product used for unknown indication
     Dosage: 1 CPR PER DAY, ROUTE OF ADMINISTRATION: ORAL.
     Route: 048
  4. FOLIC ACID [Concomitant]
     Active Substance: FOLIC ACID
     Indication: Product used for unknown indication
     Dosage: ROUTE OF ADMINISTRATION : ORAL, 5 MG
     Route: 048
  5. TRANSIPEG [Concomitant]
     Indication: Product used for unknown indication
     Dosage: IN SACHET, ROUTE OF ADMINISTRATION : ORAL .
     Route: 048

REACTIONS (3)
  - Hallucination [Unknown]
  - Confusional state [Unknown]
  - Fall [Unknown]

NARRATIVE: CASE EVENT DATE: 20210529
